FAERS Safety Report 12677216 (Version 1)
Quarter: 2016Q3

REPORT INFORMATION
  Report Type: Spontaneous
  Country: US (occurrence: US)
  Receive Date: 20160823
  Receipt Date: 20160823
  Transmission Date: 20161109
  Serious: Yes (Other)
  Sender: FDA-Public Use
  Company Number: US-FRESENIUS MEDICAL CARE RENAL THERAPIES GROUP-FMC-1607-000533

PATIENT
  Age: 35 Year
  Sex: Male
  Weight: 90.4 kg

DRUGS (1)
  1. DELFLEX [Suspect]
     Active Substance: CALCIUM CHLORIDE\DEXTROSE\MAGNESIUM CHLORIDE\SODIUM CHLORIDE\SODIUM LACTATE
     Indication: END STAGE RENAL DISEASE
     Route: 033

REACTIONS (4)
  - Peritoneal effluent abnormal [None]
  - Staphylococcus test positive [None]
  - Peritonitis bacterial [Recovering/Resolving]
  - Wrong technique in product usage process [None]

NARRATIVE: CASE EVENT DATE: 20160711
